FAERS Safety Report 20273086 (Version 1)
Quarter: 2022Q1

REPORT INFORMATION
  Report Type: Spontaneous
  Country: US (occurrence: None)
  Receive Date: 20220101
  Receipt Date: 20220101
  Transmission Date: 20220424
  Serious: No
  Sender: FDA-Public Use
  Company Number: 2021A867237

PATIENT
  Age: 70 Year
  Sex: Female

DRUGS (1)
  1. CALQUENCE [Suspect]
     Active Substance: ACALABRUTINIB
     Indication: Chronic lymphocytic leukaemia
     Dosage: 200.0MG UNKNOWN
     Route: 048
     Dates: start: 202101, end: 202108

REACTIONS (1)
  - Therapeutic response changed [Unknown]
